FAERS Safety Report 9637469 (Version 2)
Quarter: 2013Q4

REPORT INFORMATION
  Report Type: Spontaneous
  Country: US (occurrence: US)
  Receive Date: 20131022
  Receipt Date: 20131121
  Transmission Date: 20140711
  Serious: Yes (Other)
  Sender: FDA-Public Use
  Company Number: US-BAYER-2013-127140

PATIENT
  Age: 19 Year
  Sex: Female
  Weight: 63 kg

DRUGS (1)
  1. MIRENA [Suspect]
     Indication: CONTRACEPTION
     Dosage: 20 MCG/24HR, CONT
     Route: 015
     Dates: start: 20130827, end: 20131008

REACTIONS (4)
  - Pelvic pain [None]
  - Embedded device [Recovered/Resolved]
  - Abdominal pain [Recovered/Resolved]
  - Genital haemorrhage [Recovered/Resolved]
